FAERS Safety Report 10266354 (Version 1)
Quarter: 2014Q2

REPORT INFORMATION
  Report Type: Spontaneous
  Country: CA (occurrence: CA)
  Receive Date: 20140628
  Receipt Date: 20140628
  Transmission Date: 20141212
  Serious: Yes (Death)
  Sender: FDA-Public Use
  Company Number: CA-AMGEN INC.-CANSP2014047298

PATIENT
  Age: 85 Year
  Sex: Female

DRUGS (1)
  1. SENSIPAR [Suspect]
     Indication: RENAL FAILURE CHRONIC
     Dosage: 30 MG, UNK
     Route: 065
     Dates: start: 20091115

REACTIONS (1)
  - Death [Fatal]
